FAERS Safety Report 7376656-0 (Version None)
Quarter: 2011Q1

REPORT INFORMATION
  Report Type: 
  Country: None (occurrence: None)
  Receive Date: 20110317
  Receipt Date: 20110304
  Transmission Date: 20110831
  Serious: Yes (Hospitalization)
  Sender: FDA-Public Use
  Company Number: UTC-005006

PATIENT
  Age: 28 Year
  Sex: Female
  Weight: 94.1 kg

DRUGS (3)
  1. ADCIRCA (WARFARIN SODIUM) [Concomitant]
  2. DIURETICS (DIURETICS) [Concomitant]
  3. REMODULIN [Suspect]
     Indication: PULMONARY ARTERIAL HYPERTENSION
     Dosage: 51.84 UG/KG (0.036 UG/KG,L IN 1 MIN),SUBCUTANEOUS
     Route: 058
     Dates: start: 20101105

REACTIONS (3)
  - LACERATION [None]
  - FALL [None]
  - EPISTAXIS [None]
